FAERS Safety Report 6370107-0 (Version None)
Quarter: 2009Q3

REPORT INFORMATION
  Report Type: 
  Country: None (occurrence: None)
  Receive Date: 20090923
  Receipt Date: 20070507
  Transmission Date: 20100115
  Serious: No
  Sender: FDA-Public Use
  Company Number: US-ASTRAZENECA-2006UW22296

PATIENT
  Age: 34 Year
  Sex: Female
  Weight: 121.1 kg

DRUGS (30)
  1. SEROQUEL [Suspect]
     Indication: SCHIZOPHRENIA
     Route: 048
     Dates: start: 20011001
  2. SEROQUEL [Suspect]
     Indication: DEPRESSION
     Route: 048
     Dates: start: 20011001
  3. SEROQUEL [Suspect]
     Indication: MOOD SWINGS
     Route: 048
     Dates: start: 20011001
  4. SEROQUEL [Suspect]
     Route: 048
     Dates: start: 20030717
  5. SEROQUEL [Suspect]
     Route: 048
     Dates: start: 20030717
  6. SEROQUEL [Suspect]
     Route: 048
     Dates: start: 20030717
  7. RISPERDAL [Concomitant]
  8. ZYPREXA [Concomitant]
  9. PROZAC [Concomitant]
  10. DECADRON [Concomitant]
  11. ZOFRAN [Concomitant]
  12. OXALIPLATIN [Concomitant]
  13. XELODA [Concomitant]
  14. LEUCOVORIN CALCIUM [Concomitant]
  15. LEVAQUIN [Concomitant]
  16. ULTRAM [Concomitant]
  17. CEPHALEXIN [Concomitant]
  18. PROMETH [Concomitant]
  19. LORTAB [Concomitant]
  20. FOLVITE [Concomitant]
  21. BUSPAR [Concomitant]
  22. MIDAZOLAM HCL [Concomitant]
  23. XYLOCAINE [Concomitant]
  24. TYLOX [Concomitant]
  25. REGLAN [Concomitant]
  26. AVANDIA [Concomitant]
  27. DILANTIN [Concomitant]
  28. PROPOFOL [Concomitant]
  29. ROBINUL [Concomitant]
  30. NALBUPHINE [Concomitant]

REACTIONS (2)
  - DIABETES MELLITUS [None]
  - GALLBLADDER DISORDER [None]
